FAERS Safety Report 10049341 (Version 1)
Quarter: 2014Q2

REPORT INFORMATION
  Report Type: Spontaneous
  Country: AT (occurrence: AT)
  Receive Date: 20140401
  Receipt Date: 20140401
  Transmission Date: 20141212
  Serious: Yes (Life-Threatening, Hospitalization)
  Sender: FDA-Public Use
  Company Number: AT-AMGEN-AUTSP2014022524

PATIENT
  Age: 64 Year
  Sex: Female
  Weight: 60 kg

DRUGS (5)
  1. ENBREL [Suspect]
     Indication: RHEUMATOID ARTHRITIS
     Dosage: 50 MG, WEEKLY
     Route: 058
     Dates: start: 201305
  2. IBUPROFEN [Concomitant]
     Dosage: UNK
  3. INDERAL [Concomitant]
     Dosage: UNK
  4. URSOFALK [Concomitant]
     Dosage: UNK
  5. PANTOLOC                           /01263204/ [Concomitant]
     Dosage: UNK

REACTIONS (1)
  - Bile duct stone [Recovered/Resolved]
